FAERS Safety Report 6690265-8 (Version None)
Quarter: 2010Q2

REPORT INFORMATION
  Report Type: 
  Country: None (occurrence: None)
  Receive Date: 20100412
  Receipt Date: 20091207
  Transmission Date: 20101027
  Serious: No
  Sender: FDA-Public Use
  Company Number: 1000010598

PATIENT
  Age: 69 Year
  Sex: Female

DRUGS (7)
  1. BYSTOLIC [Suspect]
     Indication: HEART RATE IRREGULAR
     Dosage: 5 MG (5 MG, 1 IN 1 D), ORAL
     Route: 048
     Dates: start: 20090701
  2. LEVOTHYROXINE SODIUM [Concomitant]
  3. WELLBUTRIN [Concomitant]
  4. CALCIUM [Concomitant]
  5. VITAMINS [Concomitant]
  6. VITAMIN D [Concomitant]
  7. MINERAL TAB [Concomitant]

REACTIONS (3)
  - ALOPECIA [None]
  - INCREASED APPETITE [None]
  - WEIGHT INCREASED [None]
